FAERS Safety Report 9262593 (Version 3)
Quarter: 2013Q3

REPORT INFORMATION
  Report Type: Report from Study
  Country: BR (occurrence: BR)
  Receive Date: 20130430
  Receipt Date: 20130708
  Transmission Date: 20140515
  Serious: Yes (Hospitalization, Other)
  Sender: FDA-Public Use
  Company Number: BR-ROCHE-1219726

PATIENT
  Sex: Female
  Weight: 67 kg

DRUGS (4)
  1. MABTHERA [Suspect]
     Indication: RHEUMATOID ARTHRITIS
     Route: 042
     Dates: start: 20120401, end: 20121015
  2. LOSARTAN [Concomitant]
     Indication: HYPERTENSION
     Route: 065
  3. PURAN T4 [Concomitant]
     Indication: THYROID DISORDER
     Route: 065
  4. ARAVA [Concomitant]

REACTIONS (6)
  - Pneumonia [Recovered/Resolved]
  - Intestinal haemorrhage [Unknown]
  - Anaemia [Unknown]
  - Asthenia [Unknown]
  - Pain [Not Recovered/Not Resolved]
  - Sinusitis [Unknown]
